FAERS Safety Report 7156123 (Version 2)
Quarter: 2015Q3

REPORT INFORMATION
  Report Type: Spontaneous
  Country: AU (occurrence: AU)
  Receive Date: 20091022
  Receipt Date: 20150925
  Transmission Date: 20151125
  Serious: Yes (Life-Threatening)
  Sender: FDA-Public Use
  Company Number: AU-PFIZER INC-2009281291

PATIENT
  Age: 41 Year
  Sex: Female

DRUGS (3)
  1. PARIET [Concomitant]
     Active Substance: RABEPRAZOLE SODIUM
     Dosage: UNK
  2. ASMOL [Concomitant]
     Active Substance: ALBUTEROL SULFATE
     Dosage: UNK
  3. CHAMPIX [Suspect]
     Active Substance: VARENICLINE TARTRATE
     Dosage: 2 MG, DAILY
     Dates: start: 20090716, end: 20090923

REACTIONS (3)
  - Aggression [Unknown]
  - Affect lability [Unknown]
  - Suicidal ideation [Unknown]

NARRATIVE: CASE EVENT DATE: 2009
